FAERS Safety Report 4582687-6 (Version None)
Quarter: 2005Q1

REPORT INFORMATION
  Report Type: 
  Country: None (occurrence: None)
  Receive Date: 20050215
  Receipt Date: 20050120
  Transmission Date: 20050727
  Serious: Yes (Hospitalization)
  Sender: FDA-Public Use
  Company Number: US-GLAXOSMITHKLINE-A0541516A

PATIENT
  Age: 50 Year
  Sex: Male

DRUGS (3)
  1. NICODERM CQ [Suspect]
     Indication: SMOKING CESSATION THERAPY
     Route: 062
     Dates: start: 20050114
  2. WELLBUTRIN [Suspect]
     Indication: SMOKING CESSATION THERAPY
     Dosage: 150MG PER DAY
     Route: 048
     Dates: start: 20050110
  3. ATIVAN [Concomitant]
     Route: 048

REACTIONS (6)
  - APPLICATION SITE VESICLES [None]
  - CHEST PAIN [None]
  - ELECTROCARDIOGRAM CHANGE [None]
  - HEART RATE DECREASED [None]
  - NICOTINE DEPENDENCE [None]
  - VENTRICULAR EXTRASYSTOLES [None]
